FAERS Safety Report 7293030-6 (Version None)
Quarter: 2011Q1

REPORT INFORMATION
  Report Type: 
  Country: None (occurrence: None)
  Receive Date: 20110203
  Receipt Date: 20110114
  Transmission Date: 20110831
  Serious: Yes (Hospitalization, Other)
  Sender: FDA-Public Use
  Company Number: 021752

PATIENT
  Sex: Male
  Weight: 60.3 kg

DRUGS (12)
  1. KEPPRA [Suspect]
     Indication: FRONTAL LOBE EPILEPSY
     Dosage: (500 MG ORAL), (1000 MG ORAL), (2000 MG ORAL), (3000 MG ORAL)
     Route: 048
     Dates: start: 20060126, end: 20060906
  2. KEPPRA [Suspect]
     Indication: FRONTAL LOBE EPILEPSY
     Dosage: (500 MG ORAL), (1000 MG ORAL), (2000 MG ORAL), (3000 MG ORAL)
     Route: 048
     Dates: start: 20061005, end: 20061101
  3. KEPPRA [Suspect]
     Indication: FRONTAL LOBE EPILEPSY
     Dosage: (500 MG ORAL), (1000 MG ORAL), (2000 MG ORAL), (3000 MG ORAL)
     Route: 048
     Dates: start: 20060907, end: 20061004
  4. KEPPRA [Suspect]
     Indication: FRONTAL LOBE EPILEPSY
     Dosage: (500 MG ORAL), (1000 MG ORAL), (2000 MG ORAL), (3000 MG ORAL)
     Route: 048
     Dates: start: 20061102
  5. PHENYTOIN [Suspect]
     Indication: FRONTAL LOBE EPILEPSY
     Dosage: (75 MG ORAL)
     Route: 048
     Dates: start: 20050426
  6. DIFLAL [Concomitant]
  7. PHENOBAL /00023201/ (PHENOBAL) [Suspect]
     Indication: FRONTAL LOBE EPILEPSY
     Dosage: (120 MG ORAL)
     Route: 048
     Dates: start: 20041026
  8. NIZORAL [Concomitant]
  9. EBASTINE [Concomitant]
  10. PHENYTOIN [Suspect]
     Indication: FRONTAL LOBE EPILEPSY
     Dosage: (200 MG ORAL)
     Route: 048
     Dates: start: 20041007
  11. LAMISIL /00992601/ [Concomitant]
  12. CARBAMAZEPINE [Suspect]
     Indication: FRONTAL LOBE EPILEPSY
     Dosage: (900 MG ORAL)
     Route: 048
     Dates: start: 20051101

REACTIONS (11)
  - TINEA INFECTION [None]
  - BLOOD ALKALINE PHOSPHATASE INCREASED [None]
  - WEIGHT DECREASED [None]
  - PYREXIA [None]
  - SYNOVIAL CYST [None]
  - SMALL INTESTINE CARCINOMA STAGE III [None]
  - PERIPANCREATIC FLUID COLLECTION [None]
  - ECZEMA [None]
  - BLOOD TRIGLYCERIDES INCREASED [None]
  - GAMMA-GLUTAMYLTRANSFERASE INCREASED [None]
  - ALANINE AMINOTRANSFERASE INCREASED [None]
